FAERS Safety Report 11483899 (Version 1)
Quarter: 2015Q3

REPORT INFORMATION
  Report Type: Spontaneous
  Country: US (occurrence: US)
  Receive Date: 20150903
  Receipt Date: 20150903
  Transmission Date: 20151125
  Serious: No
  Sender: FDA-Public Use
  Company Number: US-ELI_LILLY_AND_COMPANY-US201208002426

PATIENT
  Age: 66 Year
  Sex: Female

DRUGS (1)
  1. CYMBALTA [Suspect]
     Active Substance: DULOXETINE HYDROCHLORIDE
     Indication: PAIN IN EXTREMITY
     Dosage: 30 MG, QD
     Dates: start: 20120718, end: 20120803

REACTIONS (6)
  - Off label use [Unknown]
  - Dry mouth [Unknown]
  - Disturbance in attention [Unknown]
  - Somnolence [Unknown]
  - Nausea [Recovered/Resolved]
  - Asthenia [Unknown]
